FAERS Safety Report 4453224-1 (Version None)
Quarter: 2004Q3

REPORT INFORMATION
  Report Type: 
  Country: None (occurrence: None)
  Receive Date: 20040901
  Receipt Date: 20040609
  Transmission Date: 20050211
  Serious: Yes (Other)
  Sender: FDA-Public Use
  Company Number: US080026

PATIENT
  Age: 38 Year
  Sex: Male
  Weight: 113.5 kg

DRUGS (2)
  1. ENBREL [Suspect]
     Indication: PSORIATIC ARTHROPATHY
     Dosage: 25 MG, 2 IN 1 WEEKS
     Dates: start: 20030301
  2. METHOTREXATE [Concomitant]

REACTIONS (1)
  - LYMPHOMA [None]
